FAERS Safety Report 19818869 (Version 1)
Quarter: 2021Q3

REPORT INFORMATION
  Report Type: Spontaneous
  Country: CO (occurrence: CO)
  Receive Date: 20210912
  Receipt Date: 20210912
  Transmission Date: 20211014
  Serious: Yes (Other)
  Sender: FDA-Public Use
  Company Number: CO-AMGEN-COLSP2021140269

PATIENT
  Age: 45 Year
  Sex: Female

DRUGS (1)
  1. ENBREL [Suspect]
     Active Substance: ETANERCEPT
     Indication: RHEUMATOID ARTHRITIS
     Dosage: 50 MG, EVERY 8 DAYS
     Route: 058
     Dates: start: 2018, end: 202108

REACTIONS (2)
  - Off label use [Unknown]
  - Rheumatoid arthritis [Unknown]

NARRATIVE: CASE EVENT DATE: 2018
